FAERS Safety Report 15042687 (Version 1)
Quarter: 2018Q2

REPORT INFORMATION
  Report Type: Spontaneous
  Country: US (occurrence: US)
  Receive Date: 20180621
  Receipt Date: 20180621
  Transmission Date: 20180711
  Serious: Yes (Hospitalization)
  Sender: FDA-Public Use
  Company Number: US-009507513-1806USA007984

PATIENT
  Sex: Female

DRUGS (5)
  1. ZOSTAVAX [Suspect]
     Active Substance: VARICELLA-ZOSTER VIRUS STRAIN OKA/MERCK LIVE ANTIGEN
     Indication: PROPHYLAXIS
     Dates: start: 2016, end: 2016
  2. STERILE DILUENT (WATER) [Suspect]
     Active Substance: WATER
     Dosage: UNK
     Dates: start: 2016, end: 2016
  3. LYRICA [Concomitant]
     Active Substance: PREGABALIN
     Dosage: UNK
  4. NEURONTIN [Concomitant]
     Active Substance: GABAPENTIN
     Dosage: UNK
  5. VICODIN [Concomitant]
     Active Substance: ACETAMINOPHEN\HYDROCODONE BITARTRATE
     Dosage: UNK

REACTIONS (3)
  - Pyrexia [Not Recovered/Not Resolved]
  - Neuralgia [Not Recovered/Not Resolved]
  - Herpes zoster [Not Recovered/Not Resolved]

NARRATIVE: CASE EVENT DATE: 2016
